FAERS Safety Report 10957865 (Version 2)
Quarter: 2015Q2

REPORT INFORMATION
  Report Type: Report from Study
  Country: BR (occurrence: BR)
  Receive Date: 20150326
  Receipt Date: 20150616
  Transmission Date: 20150821
  Serious: Yes (Other)
  Sender: FDA-Public Use
  Company Number: PHHY2014BR162665

PATIENT
  Age: 70 Year
  Sex: Female
  Weight: 65 kg

DRUGS (4)
  1. PRESS PLUS [Concomitant]
     Indication: HYPERTENSION
     Dosage: 1 DF, QD
     Route: 065
  2. AFINITOR [Suspect]
     Active Substance: EVEROLIMUS
     Indication: NEUROENDOCRINE TUMOUR
     Dosage: 1 DF OF 5 MG, QD
     Route: 048
     Dates: start: 201310
  3. TIORFAN [Concomitant]
     Active Substance: RACECADOTRIL
     Indication: PRODUCT USED FOR UNKNOWN INDICATION
     Dosage: 1 DF, Q8H
     Route: 048
  4. AFINITOR [Suspect]
     Active Substance: EVEROLIMUS
     Dosage: 1 DF OF 10 MG, QD
     Route: 048

REACTIONS (10)
  - Fluid retention [Unknown]
  - Drug ineffective [Unknown]
  - Second primary malignancy [Unknown]
  - Malignant neoplasm progression [Not Recovered/Not Resolved]
  - Uterine neoplasm [Not Recovered/Not Resolved]
  - Hepatic vein thrombosis [Recovering/Resolving]
  - Swelling [Recovering/Resolving]
  - Renal neoplasm [Not Recovered/Not Resolved]
  - Ovarian cancer [Not Recovered/Not Resolved]
  - Anaemia [Unknown]

NARRATIVE: CASE EVENT DATE: 201411
